FAERS Safety Report 15681881 (Version 3)
Quarter: 2019Q1

REPORT INFORMATION
  Report Type: Spontaneous
  Country: NL (occurrence: NL)
  Receive Date: 20181203
  Receipt Date: 20190114
  Transmission Date: 20190417
  Serious: Yes (Death)
  Sender: FDA-Public Use
  Company Number: PHHY2018NL171798

PATIENT

DRUGS (3)
  1. GENTAMICIN. [Suspect]
     Active Substance: GENTAMICIN
     Indication: STAPHYLOCOCCAL BACTERAEMIA
     Dosage: UNK
     Route: 042
  2. FLUCLOXACILLIN [Suspect]
     Active Substance: FLUCLOXACILLIN
     Indication: STAPHYLOCOCCAL BACTERAEMIA
     Dosage: UNK
     Route: 042
  3. RIFAMPICIN [Suspect]
     Active Substance: RIFAMPIN
     Indication: STAPHYLOCOCCAL BACTERAEMIA
     Dosage: UNK
     Route: 042

REACTIONS (2)
  - Sepsis [Fatal]
  - Haemorrhage intracranial [Fatal]
